FAERS Safety Report 16820983 (Version 4)
Quarter: 2020Q1

REPORT INFORMATION
  Report Type: Report from Study
  Country: US (occurrence: US)
  Receive Date: 20190918
  Receipt Date: 20200303
  Transmission Date: 20200409
  Serious: Yes (Other)
  Sender: FDA-Public Use
  Company Number: US-ROCHE-2410794

PATIENT
  Age: 67 Year
  Sex: Female
  Weight: 67.19 kg

DRUGS (6)
  1. CHLORTHALIDONE. [Concomitant]
     Active Substance: CHLORTHALIDONE
  2. OCREVUS [Suspect]
     Active Substance: OCRELIZUMAB
     Dosage: 2ND HALF DOSE;
     Route: 042
     Dates: start: 20190402
  3. ALENDRONATE SODIUM. [Concomitant]
     Active Substance: ALENDRONATE SODIUM
     Route: 065
  4. ATORVASTATIN CALCIUM. [Concomitant]
     Active Substance: ATORVASTATIN CALCIUM
  5. LABETALOL HCL [Concomitant]
     Active Substance: LABETALOL HYDROCHLORIDE
  6. OCREVUS [Suspect]
     Active Substance: OCRELIZUMAB
     Indication: RELAPSING MULTIPLE SCLEROSIS
     Dosage: AS DIRECTED PER MONTH?300MG/10ML
     Route: 042
     Dates: start: 20190306

REACTIONS (16)
  - Pruritus [Recovered/Resolved]
  - Malaise [Unknown]
  - Gastroenteritis viral [Unknown]
  - Haemoptysis [Unknown]
  - Weight decreased [Unknown]
  - Hypersensitivity [Unknown]
  - Insomnia [Unknown]
  - Visual impairment [Unknown]
  - Vomiting [Unknown]
  - Malaise [Unknown]
  - Hip arthroplasty [Unknown]
  - Radial nerve palsy [Not Recovered/Not Resolved]
  - Diarrhoea [Unknown]
  - Pruritus [Recovered/Resolved]
  - Amnesia [Unknown]
  - Fatigue [Unknown]

NARRATIVE: CASE EVENT DATE: 20190307
